FAERS Safety Report 15114949 (Version 2)
Quarter: 2018Q4

REPORT INFORMATION
  Report Type: Spontaneous
  Country: US (occurrence: US)
  Receive Date: 20180706
  Receipt Date: 20181205
  Transmission Date: 20190204
  Serious: Yes (Hospitalization)
  Sender: FDA-Public Use
  Company Number: US-SA-2018SA155668

PATIENT
  Age: 70 Year
  Sex: Female

DRUGS (3)
  1. TOUJEO [Suspect]
     Active Substance: INSULIN GLARGINE
     Indication: TYPE 2 DIABETES MELLITUS
     Dosage: 30 U, QD
     Route: 051
  2. NOVOLOG [Concomitant]
     Active Substance: INSULIN ASPART
     Route: 065
  3. LANTUS [Suspect]
     Active Substance: INSULIN GLARGINE
     Indication: DIABETES MELLITUS
     Dosage: 30 U, QD
     Route: 065

REACTIONS (5)
  - Scratch [Unknown]
  - Device operational issue [Unknown]
  - Hyperglycaemia [Unknown]
  - Product dose omission [Unknown]
  - Blood iron decreased [Unknown]
